FAERS Safety Report 9758898 (Version 1)
Quarter: 2013Q4

REPORT INFORMATION
  Report Type: Spontaneous
  Country: US (occurrence: None)
  Receive Date: 20131216
  Receipt Date: 20131216
  Transmission Date: 20140711
  Serious: No
  Sender: FDA-Public Use
  Company Number: 163-POMAL-13041913 (1)

PATIENT
  Age: 53 Year
  Sex: Male

DRUGS (8)
  1. POMALYST (POMALIDOMIDE) (4 MILLIGRAM, CAPSULES) [Suspect]
     Indication: PLASMA CELL MYELOMA
     Dosage: 4 MG, 21 IN 21 D,  PO
  2. CENTRUM (CENTRUM) (UNKNOWN) [Concomitant]
  3. CODEINE SULFATE (CODEINE SULFATE) (UNKNOWN) [Concomitant]
  4. DEXAMETHASONE (DEXAMETHASONE) (UNKNOWN) [Concomitant]
  5. HYDROCODONE BITARTRATE (HYDROCODONE BITARTRATE) (UNKNOWN) [Concomitant]
  6. KLOR-CON 10 (POTASSIUM CHLORIDE) (UNKNOWN) [Concomitant]
  7. MAG-OXIDE (UNKNOWN) [Concomitant]
  8. OMEGA 3 (FISH OIL) (UNKNOWN) [Concomitant]

REACTIONS (1)
  - Cough [None]
